FAERS Safety Report 20774399 (Version 1)
Quarter: 2022Q2

REPORT INFORMATION
  Report Type: Spontaneous
  Country: JP (occurrence: JP)
  Receive Date: 20220502
  Receipt Date: 20220502
  Transmission Date: 20220721
  Serious: Yes (Other)
  Sender: FDA-Public Use
  Company Number: JP-ABBVIE-22K-087-4225964-00

PATIENT

DRUGS (1)
  1. LUVOX [Suspect]
     Active Substance: FLUVOXAMINE MALEATE
     Indication: Product used for unknown indication
     Route: 048

REACTIONS (6)
  - Retinal tear [Unknown]
  - Retinal degeneration [Unknown]
  - Retinal detachment [Unknown]
  - Occupational exposure to product [Unknown]
  - Retinal degeneration [Unknown]
  - Choking sensation [Unknown]

NARRATIVE: CASE EVENT DATE: 20190101
